FAERS Safety Report 8181226-0 (Version None)
Quarter: 2012Q1

REPORT INFORMATION
  Report Type: 
  Country: None (occurrence: None)
  Receive Date: 20120126
  Receipt Date: 20111104
  Transmission Date: 20120608
  Serious: Yes (Other)
  Sender: FDA-Public Use
  Company Number: PHEH2011US008776

PATIENT
  Sex: Male

DRUGS (1)
  1. AFINITOR [Suspect]
     Indication: MALIGNANT NEOPLASM OF ISLETS OF LANGERHANS
     Dosage: 10 MG, QD, ORAL
     Route: 048
     Dates: start: 20111001, end: 20111026

REACTIONS (3)
  - DIARRHOEA [None]
  - THROMBOCYTOPENIA [None]
  - PLATELET COUNT DECREASED [None]
